FAERS Safety Report 21890354 (Version 1)
Quarter: 2023Q1

REPORT INFORMATION
  Report Type: Spontaneous
  Country: CN (occurrence: CN)
  Receive Date: 20230120
  Receipt Date: 20230120
  Transmission Date: 20230418
  Serious: Yes (Other)
  Sender: FDA-Public Use
  Company Number: CN-PFIZER INC-PV202300012511

PATIENT
  Age: 70 Year
  Sex: Female
  Weight: 47.5 kg

DRUGS (1)
  1. VFEND [Suspect]
     Active Substance: VORICONAZOLE
     Indication: Anti-infective therapy
     Dosage: 1.2 G, 2X/DAY
     Route: 041
     Dates: start: 20221202, end: 20221209

REACTIONS (4)
  - Hallucination, visual [Recovering/Resolving]
  - Altered state of consciousness [Recovering/Resolving]
  - Mental disorder [Recovering/Resolving]
  - Screaming [Recovering/Resolving]

NARRATIVE: CASE EVENT DATE: 20221209
